FAERS Safety Report 19665740 (Version 1)
Quarter: 2021Q3

REPORT INFORMATION
  Report Type: Spontaneous
  Country: US (occurrence: US)
  Receive Date: 20210805
  Receipt Date: 20210805
  Transmission Date: 20211014
  Serious: No
  Sender: FDA-Public Use
  Company Number: None

PATIENT
  Age: 32 Year
  Sex: Female
  Weight: 96.75 kg

DRUGS (4)
  1. CAPECITABINE. [Suspect]
     Active Substance: CAPECITABINE
     Indication: BREAST CANCER
     Dosage: ?          OTHER FREQUENCY:BID X 14/21 DAYS;?
     Route: 048
     Dates: start: 20210729
  2. TUKYSA 150MG [Concomitant]
  3. CARVEDILOL 6.25MG [Concomitant]
     Active Substance: CARVEDILOL
  4. DEXAMETHASONE 4MG [Concomitant]
     Active Substance: DEXAMETHASONE

REACTIONS (2)
  - Dry skin [None]
  - Skin discolouration [None]

NARRATIVE: CASE EVENT DATE: 20210805
